FAERS Safety Report 8139109-8 (Version None)
Quarter: 2012Q1

REPORT INFORMATION
  Report Type: 
  Country: None (occurrence: None)
  Receive Date: 20120215
  Receipt Date: 20120202
  Transmission Date: 20120608
  Serious: Yes (Other)
  Sender: FDA-Public Use
  Company Number: FR-ALLERGAN-1201782US

PATIENT
  Age: 95 Year
  Sex: Male

DRUGS (1)
  1. BIMATOPROST AND TIMOLOL MALEATE [Suspect]
     Indication: GLAUCOMA
     Dosage: 1 GTT, QPM
     Route: 047

REACTIONS (3)
  - EYE PAIN [None]
  - CHOROIDAL DETACHMENT [None]
  - OCULAR HYPERAEMIA [None]
